FAERS Safety Report 8492040-0 (Version None)
Quarter: 2012Q3

REPORT INFORMATION
  Report Type: 
  Country: None (occurrence: None)
  Receive Date: 20120706
  Receipt Date: 20120629
  Transmission Date: 20120928
  Serious: Yes (Death)
  Sender: FDA-Public Use
  Company Number: DE-UCBSA-055847

PATIENT
  Age: 32 Year
  Sex: Female

DRUGS (3)
  1. VIMPAT [Suspect]
     Indication: GRAND MAL CONVULSION
     Route: 048
     Dates: start: 20111025, end: 20120412
  2. LAMOTRIGINE [Suspect]
     Indication: GRAND MAL CONVULSION
     Route: 048
     Dates: start: 20110501, end: 20120412
  3. ANTIEPILEPTICS [Concomitant]

REACTIONS (2)
  - CONVULSION [None]
  - BRAIN OEDEMA [None]
